FAERS Safety Report 16680256 (Version 1)
Quarter: 2019Q3

REPORT INFORMATION
  Report Type: Report from Study
  Country: None (occurrence: US)
  Receive Date: 20190807
  Receipt Date: 20190807
  Transmission Date: 20191004
  Serious: Yes (Hospitalization, Other)
  Sender: FDA-Public Use
  Company Number: US-BIOVITRUM-2019US2325

PATIENT
  Sex: Female

DRUGS (1)
  1. KINERET [Suspect]
     Active Substance: ANAKINRA
     Indication: RHEUMATOID ARTHRITIS
     Route: 058

REACTIONS (5)
  - Urinary tract infection [Unknown]
  - Localised infection [Unknown]
  - Blood glucose decreased [Unknown]
  - Product dose omission [Unknown]
  - Sudden onset of sleep [Unknown]
